FAERS Safety Report 8320821-2 (Version None)
Quarter: 2012Q2

REPORT INFORMATION
  Report Type: 
  Country: None (occurrence: None)
  Receive Date: 20120430
  Receipt Date: 20120417
  Transmission Date: 20120825
  Serious: Yes (Other)
  Sender: FDA-Public Use
  Company Number: PHHY2012US032446

PATIENT
  Age: 58 Year
  Sex: Female

DRUGS (2)
  1. NILOTINIB [Suspect]
     Indication: CHRONIC MYELOID LEUKAEMIA
     Dates: start: 20101201
  2. HYDROXYUREA [Concomitant]
     Indication: CHRONIC MYELOID LEUKAEMIA

REACTIONS (8)
  - HAIRY CELL LEUKAEMIA [None]
  - THROMBOCYTOPENIA [None]
  - NORMOCHROMIC NORMOCYTIC ANAEMIA [None]
  - PANCYTOPENIA [None]
  - BONE MARROW FAILURE [None]
  - NEOPLASM MALIGNANT [None]
  - HAEMATOCRIT DECREASED [None]
  - LEUKOPENIA [None]
